FAERS Safety Report 13097475 (Version 1)
Quarter: 2017Q1

REPORT INFORMATION
  Report Type: Spontaneous
  Country: US (occurrence: US)
  Receive Date: 20170109
  Receipt Date: 20170109
  Transmission Date: 20170428
  Serious: No
  Sender: FDA-Public Use
  Company Number: US-JNJFOC-20161225412

PATIENT
  Sex: Male

DRUGS (4)
  1. CHILDRENS MOTRIN [Suspect]
     Active Substance: IBUPROFEN
     Indication: EAR INFECTION
     Route: 065
  2. MOTRIN INFANTS [Suspect]
     Active Substance: IBUPROFEN
     Indication: TEETHING
     Route: 065
  3. CHILDRENS MOTRIN [Suspect]
     Active Substance: IBUPROFEN
     Indication: TEETHING
     Route: 065
  4. MOTRIN INFANTS [Suspect]
     Active Substance: IBUPROFEN
     Indication: EAR INFECTION
     Route: 065

REACTIONS (2)
  - Product use issue [Unknown]
  - Therapeutic response unexpected [Unknown]
